FAERS Safety Report 21956895 (Version 4)
Quarter: 2023Q1

REPORT INFORMATION
  Report Type: Spontaneous
  Country: US (occurrence: US)
  Receive Date: 20230206
  Receipt Date: 20230330
  Transmission Date: 20230418
  Serious: No
  Sender: FDA-Public Use
  Company Number: US-BoehringerIngelheim-2023-BI-216817

PATIENT
  Sex: Male

DRUGS (1)
  1. COMBIVENT RESPIMAT [Suspect]
     Active Substance: ALBUTEROL SULFATE\IPRATROPIUM BROMIDE
     Indication: Exposure to toxic agent
     Dosage: 104851C,201122A,0003715A

REACTIONS (3)
  - Intentional product use issue [Unknown]
  - Dyspnoea [Unknown]
  - Device defective [Unknown]
